FAERS Safety Report 15230933 (Version 1)
Quarter: 2018Q3

REPORT INFORMATION
  Report Type: Spontaneous
  Country: US (occurrence: US)
  Receive Date: 20180707
  Receipt Date: 20180707
  Transmission Date: 20181010
  Serious: Yes (Hospitalization)
  Sender: FDA-Public Use
  Company Number: None

PATIENT
  Age: 42 Year
  Sex: Female
  Weight: 119.2 kg

DRUGS (1)
  1. ASPIRIN. [Suspect]
     Active Substance: ASPIRIN
     Dates: end: 20180518

REACTIONS (4)
  - Wound infection [None]
  - Pyrexia [None]
  - Skin necrosis [None]
  - Inadequate analgesia [None]

NARRATIVE: CASE EVENT DATE: 20180624
